FAERS Safety Report 11056346 (Version 2)
Quarter: 2015Q2

REPORT INFORMATION
  Report Type: Other
  Country: DK (occurrence: TR)
  Receive Date: 20150422
  Receipt Date: 20150514
  Transmission Date: 20150821
  Serious: Yes (Hospitalization)
  Sender: FDA-Public Use
  Company Number: TR-FRI-1000075967

PATIENT
  Age: 64 Year
  Sex: Female

DRUGS (5)
  1. ESCITALOPRAM [Suspect]
     Active Substance: ESCITALOPRAM OXALATE
     Indication: MAJOR DEPRESSION
     Dosage: 5 MG
  2. HALOPERIDOL. [Concomitant]
     Active Substance: HALOPERIDOL
     Indication: MAJOR DEPRESSION
     Dosage: 1 MG
  3. ESCITALOPRAM [Suspect]
     Active Substance: ESCITALOPRAM OXALATE
     Dosage: 10 MG
  4. HALOPERIDOL. [Concomitant]
     Active Substance: HALOPERIDOL
     Dosage: 3.5 MG
     Route: 065
  5. ESCITALOPRAM [Suspect]
     Active Substance: ESCITALOPRAM OXALATE
     Dosage: 15 MG

REACTIONS (2)
  - Embolism venous [Unknown]
  - Pulmonary embolism [Unknown]
